FAERS Safety Report 4464515-2 (Version None)
Quarter: 2004Q3

REPORT INFORMATION
  Report Type: 
  Country: None (occurrence: None)
  Receive Date: 20040929
  Receipt Date: 20040915
  Transmission Date: 20050211
  Serious: Yes (Disabling, Other)
  Sender: FDA-Public Use
  Company Number: 2004-BP-08325YA

PATIENT
  Age: 55 Year
  Sex: Male

DRUGS (3)
  1. OMNIC CAPSULES (TAMSULOSIN) (NR) [Suspect]
     Indication: BENIGN PROSTATIC HYPERPLASIA
     Dosage: 0.4 MG (NR)
     Route: 048
     Dates: start: 20040901, end: 20040909
  2. URTICA (NR) [Concomitant]
  3. GINKGO BILOBA (GINKGO BILOBA) (NR) [Concomitant]

REACTIONS (2)
  - DEAFNESS [None]
  - TINNITUS [None]
